FAERS Safety Report 13821430 (Version 1)
Quarter: 2017Q3

REPORT INFORMATION
  Report Type: Spontaneous
  Country: BR (occurrence: BR)
  Receive Date: 20170801
  Receipt Date: 20170801
  Transmission Date: 20171127
  Serious: Yes (Other)
  Sender: FDA-Public Use
  Company Number: BR-009507513-1707BRA003560

PATIENT
  Age: 67 Year
  Sex: Female
  Weight: 72 kg

DRUGS (3)
  1. JANUMET [Suspect]
     Active Substance: METFORMIN HYDROCHLORIDE\SITAGLIPTIN PHOSPHATE
     Indication: DIABETES MELLITUS
     Dosage: 1 TABLET, BID
     Route: 048
     Dates: start: 2012
  2. TIMOPTOL [Suspect]
     Active Substance: TIMOLOL
     Indication: GLAUCOMA
     Dosage: 1 DROP IN EACH EYE, TWICE A DAY
     Route: 047
     Dates: start: 1997
  3. TIMOPTOL-XE [Suspect]
     Active Substance: TIMOLOL
     Dosage: UNK

REACTIONS (3)
  - Arthralgia [Unknown]
  - Drug dispensing error [Unknown]
  - Depression [Unknown]

NARRATIVE: CASE EVENT DATE: 2002
